FAERS Safety Report 24395118 (Version 1)
Quarter: 2024Q4

REPORT INFORMATION
  Report Type: Report from Study
  Country: US (occurrence: US)
  Receive Date: 20241004
  Receipt Date: 20241004
  Transmission Date: 20250115
  Serious: Yes (Other)
  Sender: JOHNSON AND JOHNSON
  Company Number: US-JNJFOC-20240975888

PATIENT

DRUGS (2)
  1. DARZALEX [Suspect]
     Active Substance: DARATUMUMAB
     Indication: Bladder cancer
     Route: 065
  2. DARZALEX [Suspect]
     Active Substance: DARATUMUMAB
     Indication: Metastatic renal cell carcinoma

REACTIONS (27)
  - Hyperkalaemia [Unknown]
  - Infusion related reaction [Unknown]
  - Fatigue [Unknown]
  - Cough [Unknown]
  - Muscle spasms [Unknown]
  - Pain [Unknown]
  - Urticaria [Unknown]
  - Vomiting [Unknown]
  - Headache [Unknown]
  - Dyspnoea [Unknown]
  - Pyrexia [Unknown]
  - Hyperhidrosis [Unknown]
  - Oedema peripheral [Unknown]
  - Chills [Unknown]
  - Alanine aminotransferase increased [Unknown]
  - Chest discomfort [Unknown]
  - Rash [Unknown]
  - Nausea [Unknown]
  - Weight decreased [Unknown]
  - Constipation [Unknown]
  - Pruritus [Unknown]
  - Flushing [Unknown]
  - Oropharyngeal pain [Unknown]
  - Haematuria [Unknown]
  - Aspartate aminotransferase increased [Unknown]
  - Diarrhoea [Unknown]
  - Off label use [Unknown]
